FAERS Safety Report 5930869-0 (Version None)
Quarter: 2008Q4

REPORT INFORMATION
  Report Type: 
  Country: None (occurrence: None)
  Receive Date: 20081027
  Receipt Date: 20081015
  Transmission Date: 20090506
  Serious: Yes (Death, Hospitalization)
  Sender: FDA-Public Use
  Company Number: JP-AMGEN-US296872

PATIENT
  Sex: Male
  Weight: 40 kg

DRUGS (10)
  1. ENBREL [Suspect]
     Indication: RHEUMATOID ARTHRITIS
     Route: 058
     Dates: start: 20080611, end: 20080704
  2. EPOGIN [Concomitant]
     Indication: NEPHROGENIC ANAEMIA
     Route: 058
     Dates: start: 20080606
  3. CELECOXIB [Concomitant]
     Indication: RHEUMATOID ARTHRITIS
     Route: 048
     Dates: start: 20080521, end: 20080529
  4. AZULFIDINE EN-TABS [Concomitant]
     Indication: RHEUMATOID ARTHRITIS
     Route: 048
     Dates: start: 20070730, end: 20080605
  5. PREDNISOLONE [Concomitant]
     Indication: RHEUMATOID ARTHRITIS
     Route: 048
     Dates: start: 20080701
  6. PREDNISOLONE [Concomitant]
     Dates: start: 20020701
  7. OLMETEC [Concomitant]
     Indication: HYPERTENSION
     Route: 048
     Dates: start: 20080529
  8. PANSPORIN [Concomitant]
     Indication: URINARY TRACT INFECTION
     Route: 042
     Dates: start: 20080609, end: 20080611
  9. LANSOPRAZOLE [Concomitant]
     Indication: REFLUX OESOPHAGITIS
     Route: 048
     Dates: start: 20080423, end: 20080705
  10. LASIX [Concomitant]
     Indication: OEDEMA
     Route: 048
     Dates: start: 20080528, end: 20080709

REACTIONS (2)
  - PANCYTOPENIA [None]
  - PNEUMONIA ASPIRATION [None]
